FAERS Safety Report 5914852-7 (Version None)
Quarter: 2008Q4

REPORT INFORMATION
  Report Type: 
  Country: None (occurrence: None)
  Receive Date: 20081010
  Receipt Date: 20081002
  Transmission Date: 20090506
  Serious: Yes (Other)
  Sender: FDA-Public Use
  Company Number: PHEH2008US08813

PATIENT
  Age: 70 Year
  Sex: Female

DRUGS (3)
  1. ZOMETA [Suspect]
     Indication: METASTASES TO BONE
     Dosage: 4 MG, Q 28 DAYS
     Route: 042
  2. AVASTIN [Concomitant]
  3. GEMZAR [Concomitant]

REACTIONS (2)
  - JAW DISORDER [None]
  - OSTEONECROSIS [None]
